FAERS Safety Report 7384231-7 (Version None)
Quarter: 2011Q1

REPORT INFORMATION
  Report Type: 
  Country: None (occurrence: None)
  Receive Date: 20110322
  Receipt Date: 20110307
  Transmission Date: 20110831
  Serious: Yes (Death)
  Sender: FDA-Public Use
  Company Number: JPI-P-014119

PATIENT
  Age: 46 Year
  Sex: Male

DRUGS (1)
  1. XYREM [Suspect]
     Indication: CATAPLEXY
     Dosage: 3GM (1.5 GM, 2 IN 1 D) ORAL
     Route: 048
     Dates: start: 20071001

REACTIONS (13)
  - SOMNAMBULISM [None]
  - CHEST DISCOMFORT [None]
  - OEDEMA PERIPHERAL [None]
  - PAIN [None]
  - HEADACHE [None]
  - CELLULITIS [None]
  - MYDRIASIS [None]
  - FALL [None]
  - SPINAL COLUMN INJURY [None]
  - DRUG INEFFECTIVE [None]
  - HEAD INJURY [None]
  - GENITAL RASH [None]
  - HYPERHIDROSIS [None]
